FAERS Safety Report 5966975-4 (Version None)
Quarter: 2008Q4

REPORT INFORMATION
  Report Type: 
  Country: None (occurrence: None)
  Receive Date: 20081125
  Receipt Date: 20081024
  Transmission Date: 20090506
  Serious: No
  Sender: FDA-Public Use
  Company Number: US-AMGEN-KDL315344

PATIENT
  Sex: Female

DRUGS (1)
  1. ENBREL [Suspect]
     Indication: DRUG USE FOR UNKNOWN INDICATION
     Route: 058
     Dates: start: 20081003

REACTIONS (5)
  - DRY SKIN [None]
  - ERYTHEMA [None]
  - FATIGUE [None]
  - PAIN IN EXTREMITY [None]
  - SKIN EXFOLIATION [None]
